FAERS Safety Report 10711074 (Version 1)
Quarter: 2015Q1

REPORT INFORMATION
  Report Type: Spontaneous
  Country: AT (occurrence: AT)
  Receive Date: 20150114
  Receipt Date: 20150114
  Transmission Date: 20150721
  Serious: Yes (Hospitalization)
  Sender: FDA-Public Use
  Company Number: AT-VERTEX PHARMACEUTICALS-2015-000137

PATIENT
  Age: 40 Year
  Sex: Female
  Weight: 45 kg

DRUGS (47)
  1. PEGASYS [Suspect]
     Active Substance: PEGINTERFERON ALFA-2A
     Dosage: UNK
     Route: 065
     Dates: start: 201210
  2. SEROQUEL [Concomitant]
     Active Substance: QUETIAPINE FUMARATE
     Dosage: 75 DF, UNK
     Route: 065
     Dates: start: 20130329, end: 20130409
  3. SEROQUEL [Concomitant]
     Active Substance: QUETIAPINE FUMARATE
     Dosage: 700 DF, UNK
     Route: 065
     Dates: start: 20130530
  4. RIBAVIRIN. [Concomitant]
     Active Substance: RIBAVIRIN
     Dosage: 800 DF, UNK
     Route: 065
     Dates: start: 20130325, end: 20130514
  5. AVELOX [Concomitant]
     Active Substance: MOXIFLOXACIN HYDROCHLORIDE
     Dosage: 400 DF, UNK
     Route: 065
     Dates: start: 20130509, end: 20130513
  6. NICORETTE [Concomitant]
     Active Substance: NICOTINE
     Dosage: 21 MG, QD
     Route: 065
     Dates: start: 20130508, end: 20130514
  7. KALIORAL [Concomitant]
     Dosage: UNK
     Route: 065
     Dates: start: 20130514
  8. BERODUAL [Concomitant]
     Active Substance: FENOTEROL HYDROBROMIDE\IPRATROPIUM BROMIDE
     Dosage: 4X6 GTT
     Route: 065
     Dates: start: 20130515
  9. TUSSAMAG N [Concomitant]
     Dosage: 1-3X/DIE 1 MB
     Route: 065
     Dates: start: 20130524
  10. DEFLAMAT [Concomitant]
     Active Substance: DICLOFENAC SODIUM
     Dosage: 75 MG, BID
     Route: 065
  11. CALCIUM GLYCEROPHOSPHATE\CELLULOSE\POLYETHYLENE GLYCOL\SACCHARIN SODIUM\SODIUM HYDROXIDE\SODIUM LAURYL SULFATE\SODIUM MAGNESIUM SILICATE\SODIUM MONOFLUOROPHOSPHATE\SORBITOL\WATER [Concomitant]
     Active Substance: CALCIUM GLYCEROPHOSPHATE\POLYETHYLENE GLYCOLS\POWDERED CELLULOSE\SACCHARIN SODIUM DIHYDRATE\SODIUM HYDROXIDE\SODIUM LAURYL SULFATE\SODIUM MAGNESIUM SILICATE\SODIUM MONOFLUOROPHOSPHATE\SORBITOL\WATER
     Dosage: UNK, QD
     Route: 065
  12. NOVALGIN [Concomitant]
     Active Substance: METAMIZOLE SODIUM
     Dosage: 1 DF, UNK
     Route: 042
     Dates: start: 20130528, end: 20130528
  13. SEROQUEL XR [Concomitant]
     Active Substance: QUETIAPINE FUMARATE
     Dosage: 50 DF, UNK
     Route: 065
     Dates: start: 20130325, end: 20130331
  14. NEXIUM [Concomitant]
     Active Substance: ESOMEPRAZOLE MAGNESIUM
     Dosage: 40 DF, UNK
     Route: 065
     Dates: start: 20130525
  15. MEXALEN [Concomitant]
     Active Substance: LUBIPROSTONE
     Dosage: 1500 DF, UNK
     Route: 065
     Dates: start: 20130514, end: 20130516
  16. ZITHROMAX [Concomitant]
     Active Substance: AZITHROMYCIN DIHYDRATE
     Dosage: UNK
     Route: 065
     Dates: start: 20130524, end: 20130526
  17. MEFENAMIC-ACID [Concomitant]
     Active Substance: MEFENAMIC ACID
     Dosage: 500 MG, TID
     Route: 065
  18. TEMESTA [Concomitant]
     Active Substance: LORAZEPAM
     Route: 065
  19. PEGASYS [Suspect]
     Active Substance: PEGINTERFERON ALFA-2A
     Indication: HEPATITIS C
     Dosage: 180 ?G, QW
     Route: 065
     Dates: start: 20130512, end: 20130513
  20. IXEL [Concomitant]
     Active Substance: MILNACIPRAN HYDROCHLORIDE
     Dosage: 50 DF, UNK
     Route: 065
     Dates: start: 20130409, end: 20130410
  21. SOLU-CORTEF [Concomitant]
     Active Substance: HYDROCORTISONE SODIUM SUCCINATE
     Dosage: 500 DF, UNK
     Route: 042
     Dates: start: 20130515, end: 20130517
  22. KLACID (CLARITHROMYCIN) [Concomitant]
     Active Substance: CLARITHROMYCIN
     Dosage: 1000 DF, UNK
     Route: 065
     Dates: start: 20130530
  23. RIVOTRIL [Concomitant]
     Active Substance: CLONAZEPAM
     Dosage: 0.5 MG, UNK
     Route: 065
     Dates: start: 20130508, end: 20130512
  24. ZOLDEM [Concomitant]
     Active Substance: ZOLPIDEM TARTRATE
     Route: 065
  25. BUPRENORPHINE HCL [Concomitant]
     Active Substance: BUPRENORPHINE HYDROCHLORIDE
     Dosage: 30 ?G, QHR
     Route: 065
  26. INCIVO [Suspect]
     Active Substance: TELAPREVIR
     Indication: HEPATITIS C
     Route: 048
     Dates: start: 201210, end: 20130513
  27. MIRTABENE [Concomitant]
     Active Substance: MIRTAZAPINE
     Dosage: 30 DF, UNK
     Route: 065
     Dates: start: 20130321, end: 20140408
  28. SEROQUEL XR [Concomitant]
     Active Substance: QUETIAPINE FUMARATE
     Dosage: 150 DF, UNK
     Route: 065
     Dates: start: 20130323, end: 20130424
  29. SERETIDE [Concomitant]
     Active Substance: FLUTICASONE FUROATE\SALMETEROL XINAFOATE
     Dosage: UNK
     Route: 065
     Dates: end: 20130513
  30. COPEGUS [Suspect]
     Active Substance: RIBAVIRIN
     Indication: HEPATITIS C
     Dosage: 800 DF, UNK
     Route: 065
     Dates: start: 20130325, end: 20130513
  31. CIPRALEX [Concomitant]
     Active Substance: ESCITALOPRAM OXALATE
     Dosage: 10 DF, UNK
     Route: 065
     Dates: start: 20130530, end: 20130530
  32. MIRTABENE [Concomitant]
     Active Substance: MIRTAZAPINE
     Dosage: 30 DF, UNK
     Route: 065
     Dates: start: 20130529
  33. NEXIUM [Concomitant]
     Active Substance: ESOMEPRAZOLE MAGNESIUM
     Dosage: 20 DF, UNK
     Route: 065
     Dates: start: 20130514, end: 20130524
  34. SOLU-CORTEF [Concomitant]
     Active Substance: HYDROCORTISONE SODIUM SUCCINATE
     Dosage: 50 DF, UNK
     Route: 042
     Dates: start: 20130521, end: 20130523
  35. LYRICA [Concomitant]
     Active Substance: PREGABALIN
     Dosage: 150 MG, UNK
     Route: 065
  36. NOVALGIN [Concomitant]
     Active Substance: METAMIZOLE SODIUM
     Dosage: 2 DF, UNK
     Route: 042
     Dates: start: 20130517, end: 20130517
  37. NOVALGIN [Concomitant]
     Active Substance: METAMIZOLE SODIUM
     Dosage: 80 DF, UNK
     Route: 065
     Dates: start: 20130528
  38. CIPRALEX [Concomitant]
     Active Substance: ESCITALOPRAM OXALATE
     Dosage: 10 DF, UNK
     Route: 065
     Dates: start: 20130321, end: 20130328
  39. IXEL [Concomitant]
     Active Substance: MILNACIPRAN HYDROCHLORIDE
     Dosage: 50 DF, UNK
     Route: 065
     Dates: start: 20130325, end: 20130325
  40. CHLORHEXAMED [Concomitant]
     Dosage: UNK
     Route: 065
     Dates: start: 20130415, end: 20130513
  41. NICORETTE [Concomitant]
     Active Substance: NICOTINE
     Dosage: 15 MG, Q6HR
     Route: 065
     Dates: start: 20130529
  42. LYRICA [Concomitant]
     Active Substance: PREGABALIN
     Dosage: 200 DF, UNK
     Route: 065
     Dates: start: 20130529
  43. COPEGUS [Suspect]
     Active Substance: RIBAVIRIN
     Dosage: UNK
     Route: 065
     Dates: start: 201210, end: 20130513
  44. LOVENOX [Concomitant]
     Active Substance: ENOXAPARIN SODIUM
     Dosage: 40 DF, UNK
     Route: 065
     Dates: start: 20130514
  45. APREDNISOLONE [Concomitant]
     Dosage: 50 DF, UNK
     Route: 042
     Dates: start: 20130524
  46. MEXALEN [Concomitant]
     Active Substance: LUBIPROSTONE
     Dosage: 1000 DF, UNK
     Route: 065
     Dates: start: 20130517, end: 20130517
  47. PANTOLOC [Concomitant]
     Active Substance: PANTOPRAZOLE SODIUM
     Route: 065

REACTIONS (2)
  - Off label use [Unknown]
  - Depression [Unknown]
